FAERS Safety Report 5508933-X (Version None)
Quarter: 2007Q4

REPORT INFORMATION
  Report Type: 
  Country: None (occurrence: None)
  Receive Date: 20071031
  Receipt Date: 20070807
  Transmission Date: 20080405
  Serious: No
  Sender: FDA-Public Use
  Company Number: 2007PV033261

PATIENT
  Age: 82 Year
  Sex: Female

DRUGS (4)
  1. SYMLIN [Suspect]
     Indication: TYPE 2 DIABETES MELLITUS
     Dosage: 60 MCG;TID;SC
     Route: 058
     Dates: start: 20070701
  2. HUMALOG [Concomitant]
  3. LANTUS [Concomitant]
  4. MECLIZINE [Concomitant]

REACTIONS (7)
  - DECREASED APPETITE [None]
  - DIARRHOEA [None]
  - DIZZINESS [None]
  - NAUSEA [None]
  - VERTIGO [None]
  - VOMITING [None]
  - WRONG DRUG ADMINISTERED [None]
